FAERS Safety Report 15425434 (Version 2)
Quarter: 2018Q4

REPORT INFORMATION
  Report Type: Report from Study
  Country: DE (occurrence: DE)
  Receive Date: 20180925
  Receipt Date: 20181109
  Transmission Date: 20190204
  Serious: Yes (Hospitalization)
  Sender: FDA-Public Use
  Company Number: DE-ASTELLAS-2018US027625

PATIENT
  Age: 67 Year
  Sex: Male

DRUGS (42)
  1. ONGLYZA [Concomitant]
     Active Substance: SAXAGLIPTIN HYDROCHLORIDE
     Indication: DIABETES MELLITUS
     Dosage: 2.5 MG, ONCE DAILY (MORNING)
     Route: 048
     Dates: start: 20180517, end: 20180517
  2. GABAPENTIN. [Concomitant]
     Active Substance: GABAPENTIN
     Indication: DIABETIC NEUROPATHY
     Route: 048
     Dates: start: 20180517, end: 20180517
  3. ANTI POTASIUM [Concomitant]
     Indication: HYPERKALAEMIA
     Route: 048
     Dates: start: 20180517, end: 20180517
  4. KONAKION [Concomitant]
     Active Substance: PHYTONADIONE
     Indication: HAEMORRHAGE PROPHYLAXIS
     Dosage: 1 DF (1 AMP), UNKNOWN FREQ.
     Route: 042
     Dates: start: 20180518, end: 20180519
  5. TACROLIMUS. [Suspect]
     Active Substance: TACROLIMUS
     Indication: RENAL TRANSPLANT
     Route: 048
     Dates: start: 20180517
  6. VOTUM                              /01635402/ [Concomitant]
     Active Substance: OLMESARTAN MEDOXOMIL
     Indication: HYPERTENSION
     Route: 048
     Dates: start: 20180517, end: 20180517
  7. URAPIDIL [Concomitant]
     Active Substance: URAPIDIL
     Indication: HYPERTENSION
     Route: 048
     Dates: start: 20180517, end: 20180517
  8. TEMGESIC [Concomitant]
     Active Substance: BUPRENORPHINE HYDROCHLORIDE
     Indication: PAIN
     Dosage: 0.4 MG, ONCE DAILY (MORNING)
     Route: 060
     Dates: start: 20180517, end: 20180517
  9. VALCYTE [Concomitant]
     Active Substance: VALGANCICLOVIR HYDROCHLORIDE
     Indication: PROPHYLAXIS
     Route: 048
     Dates: start: 20180520, end: 20180712
  10. LORZAAR [Concomitant]
     Active Substance: LOSARTAN
     Indication: HYPERTENSION
     Dosage: 100 MG, TWICE DAILY (MORNING - NIGHT)
     Route: 048
     Dates: start: 20180525, end: 20180612
  11. LONOLOX [Concomitant]
     Active Substance: MINOXIDIL
     Indication: HYPERTENSION
     Route: 048
     Dates: start: 20180525, end: 20180528
  12. TACROLIMUS. [Suspect]
     Active Substance: TACROLIMUS
     Dosage: UNK UNK, UNKNOWN FREQ. (DECRESED DOSE)
     Route: 048
  13. LERCANIDIPINE [Concomitant]
     Active Substance: LERCANIDIPINE
     Indication: HYPERTENSION
     Dosage: 0.5 DF, TWICE DAILY
     Route: 048
     Dates: start: 20180517, end: 20180712
  14. TORASEMIDE [Concomitant]
     Active Substance: TORSEMIDE
     Route: 048
     Dates: start: 20180519, end: 20180712
  15. ALLOPURINOL. [Concomitant]
     Active Substance: ALLOPURINOL
     Indication: HYPERURICAEMIA
     Route: 048
     Dates: start: 20180517, end: 20180517
  16. CALCET                             /00637401/ [Concomitant]
     Indication: HYPERPARATHYROIDISM SECONDARY
     Dosage: 475 MG, THRICE DAILY  (MORNING NOON EVENING)
     Route: 048
     Dates: start: 20180517, end: 20180517
  17. PROGRAF [Concomitant]
     Active Substance: TACROLIMUS\TACROLIMUS ANHYDROUS
     Indication: PROPHYLAXIS AGAINST TRANSPLANT REJECTION
     Route: 048
     Dates: start: 20180517, end: 20180517
  18. PROGRAF [Concomitant]
     Active Substance: TACROLIMUS\TACROLIMUS ANHYDROUS
     Route: 048
     Dates: start: 20180518, end: 20180518
  19. KEPINOL [Concomitant]
     Active Substance: SULFAMETHOXAZOLE\TRIMETHOPRIM
     Indication: PNEUMOCYSTIS JIROVECII PNEUMONIA
     Route: 048
     Dates: start: 20180521, end: 20180712
  20. BICANORM [Concomitant]
     Active Substance: SODIUM BICARBONATE
     Indication: METABOLIC ACIDOSIS
     Route: 048
     Dates: start: 20180517, end: 20180517
  21. URAPIDIL [Concomitant]
     Active Substance: URAPIDIL
     Dosage: 90 MG (3 X 30), UNKNOWN FREQ.
     Route: 048
     Dates: start: 20180519, end: 20180529
  22. AMPHO MORONAL [Concomitant]
     Active Substance: AMPHOTERICIN B
     Dosage: 1 DF (PIPETTE), 4 TIMES DAILY
     Route: 065
     Dates: start: 20180712, end: 20180831
  23. INSULIN [Concomitant]
     Active Substance: INSULIN NOS
     Indication: DIABETES MELLITUS
     Dosage: 10 IE, AS NEEDED
     Route: 058
     Dates: start: 20180612
  24. TORASEMIDE [Concomitant]
     Active Substance: TORSEMIDE
     Indication: HYPERTENSION
     Dosage: 0.5 DF, TWICE DAILY (MORNING NIGHT)
     Route: 048
     Dates: start: 20180517, end: 20180517
  25. MAGNESIUM [Concomitant]
     Active Substance: MAGNESIUM
     Indication: PROPHYLAXIS
     Route: 048
     Dates: start: 20180517
  26. INSUMAN                            /00646001/ [Concomitant]
     Active Substance: INSULIN HUMAN
     Indication: DIABETES MELLITUS
     Dosage: 10 IE, AS NEEDED
     Route: 058
     Dates: start: 20180518, end: 20180521
  27. BUPRENORPHINE. [Concomitant]
     Active Substance: BUPRENORPHINE
     Indication: PAIN
     Dosage: 0.4 MG, TWICE DAILY
     Route: 060
     Dates: start: 20180519, end: 20180712
  28. HUMINSULIN [Concomitant]
     Active Substance: INSULIN HUMAN
     Indication: DIABETES MELLITUS
     Dosage: 10 IE, AS NEEDED
     Route: 058
     Dates: start: 20180522, end: 20180604
  29. MOXONIDIN [Concomitant]
     Active Substance: MOXONIDINE
     Indication: HYPERTENSION
     Dosage: 0.4 MG, TWICE DAILY (MORNING-NIGHT)
     Route: 065
     Dates: start: 20180523, end: 20180525
  30. METOPROLOL. [Concomitant]
     Active Substance: METOPROLOL
     Indication: HYPERTENSION
     Dosage: 0.5 DF, TWICE DAILY (MORNING NIGHT)
     Route: 048
     Dates: start: 20180517, end: 20180517
  31. DEKRISTOL [Concomitant]
     Active Substance: CHOLECALCIFEROL
     Indication: HYPERVITAMINOSIS D
     Dosage: 20.000 IE MO/DO, UNKNOWN FREQ.
     Route: 048
     Dates: start: 20180515, end: 20180712
  32. CEFUROXIM                          /00454602/ [Concomitant]
     Active Substance: CEFUROXIME
     Indication: INFECTION PROPHYLAXIS
     Dosage: 3 G, UNKNOWN FREQ. (BEST ESTIMATE)
     Route: 042
     Dates: start: 20180517, end: 20180517
  33. CONCOR [Concomitant]
     Active Substance: BISOPROLOL FUMARATE
     Indication: PROPHYLAXIS
     Route: 048
     Dates: start: 20180518, end: 20180712
  34. PANTOZOL [Concomitant]
     Active Substance: PANTOPRAZOLE SODIUM
     Indication: PROPHYLAXIS
     Route: 048
     Dates: start: 20180520, end: 20180712
  35. LORZAAR [Concomitant]
     Active Substance: LOSARTAN
     Route: 048
     Dates: start: 20180614, end: 20180717
  36. FLUVASTATIN [Concomitant]
     Active Substance: FLUVASTATIN SODIUM
     Indication: HYPERLIPIDAEMIA
     Route: 048
     Dates: start: 20180517, end: 20180517
  37. BICANORM [Concomitant]
     Active Substance: SODIUM BICARBONATE
     Route: 065
     Dates: start: 20180518, end: 20180712
  38. PRAVASTATIN. [Concomitant]
     Active Substance: PRAVASTATIN
     Indication: HYPERLIPIDAEMIA
     Route: 048
     Dates: start: 20180517, end: 20180712
  39. AMPHO MORONAL [Concomitant]
     Active Substance: AMPHOTERICIN B
     Indication: PROPHYLAXIS
     Route: 048
     Dates: start: 20180518, end: 20180518
  40. AMPHO MORONAL [Concomitant]
     Active Substance: AMPHOTERICIN B
     Dosage: 1 DF (PIPETTE), 4 TIMES DAILY
     Route: 065
     Dates: start: 20180522, end: 20180523
  41. NYSTATIN. [Concomitant]
     Active Substance: NYSTATIN
     Indication: PROPHYLAXIS
     Route: 048
     Dates: start: 20180518, end: 20180522
  42. INSULIN HUMAN BASAL [Concomitant]
     Indication: DIABETES MELLITUS
     Dosage: 1000 IE, AS NEEDED
     Route: 058
     Dates: start: 20180605, end: 20180612

REACTIONS (1)
  - Toxicity to various agents [Recovered/Resolved]

NARRATIVE: CASE EVENT DATE: 20180612
